FAERS Safety Report 17430463 (Version 4)
Quarter: 2020Q1

REPORT INFORMATION
  Report Type: Spontaneous
  Country: ES (occurrence: ES)
  Receive Date: 20200218
  Receipt Date: 20200225
  Transmission Date: 20200409
  Serious: Yes (Death, Hospitalization, Other)
  Sender: FDA-Public Use
  Company Number: ES-009507513-2002ESP006477

PATIENT
  Age: 65 Year
  Sex: Male

DRUGS (2)
  1. FIDAXOMICIN [Suspect]
     Active Substance: FIDAXOMICIN
     Indication: CLOSTRIDIUM DIFFICILE INFECTION
  2. FIDAXOMICIN [Suspect]
     Active Substance: FIDAXOMICIN
     Indication: CLOSTRIDIUM DIFFICILE INFECTION
     Dosage: UNK
     Route: 048

REACTIONS (10)
  - Myeloid leukaemia [Fatal]
  - Bacteraemia [Fatal]
  - Clostridium difficile infection [Recovered/Resolved]
  - Infection [Unknown]
  - Escherichia bacteraemia [Unknown]
  - Respiratory failure [Unknown]
  - Transplant [Unknown]
  - Multiple organ dysfunction syndrome [Fatal]
  - Fungaemia [Fatal]
  - Cardiac failure [Unknown]
